FAERS Safety Report 9257658 (Version 1)
Quarter: 2013Q2

REPORT INFORMATION
  Report Type: Spontaneous
  Country: US (occurrence: US)
  Receive Date: 20130426
  Receipt Date: 20130426
  Transmission Date: 20140414
  Serious: Yes (Other)
  Sender: FDA-Public Use
  Company Number: US-JNJFOC-20130412616

PATIENT
  Age: 39 Year
  Sex: Male
  Weight: 83.92 kg

DRUGS (3)
  1. NUCYNTA ER [Suspect]
     Indication: BACK PAIN
     Route: 048
     Dates: start: 20130416, end: 20130416
  2. PERCOCET [Suspect]
     Indication: PAIN
     Route: 048
  3. NEURONTIN [Concomitant]
     Indication: NERVE INJURY
     Route: 048
     Dates: start: 2008

REACTIONS (4)
  - Surgery [Unknown]
  - Somnolence [Not Recovered/Not Resolved]
  - Nausea [Not Recovered/Not Resolved]
  - Vomiting [Recovered/Resolved]
